FAERS Safety Report 8974730 (Version 1)
Quarter: 2012Q4

REPORT INFORMATION
  Report Type: Spontaneous
  Country: US (occurrence: None)
  Receive Date: 20121218
  Receipt Date: 20121218
  Transmission Date: 20130627
  Serious: Yes (Hospitalization)
  Sender: FDA-Public Use
  Company Number: None

PATIENT

DRUGS (2)
  1. SODIUM ACETATE [Suspect]
     Dosage: Sodium Acetate sodium acetate injectable IV use 4 mEq/mL vial 100 mL
     Route: 042
  2. LABETALOL [Suspect]

REACTIONS (4)
  - Medication error [None]
  - Intercepted drug dispensing error [None]
  - No adverse event [None]
  - Product label confusion [None]
